FAERS Safety Report 7948841-8 (Version None)
Quarter: 2011Q4

REPORT INFORMATION
  Report Type: 
  Country: None (occurrence: None)
  Receive Date: 20111128
  Receipt Date: 20111128
  Transmission Date: 20120403
  Serious: Yes (Other)
  Sender: FDA-Public Use
  Company Number: None

PATIENT
  Sex: Female

DRUGS (2)
  1. PEGASYS [Suspect]
     Dosage: 180MCG QW SQ
     Route: 058
     Dates: start: 20110909, end: 20111007
  2. RIBASPHERE [Suspect]
     Dosage: 600MG BID PO
     Route: 048
     Dates: start: 20110909, end: 20111007

REACTIONS (1)
  - RENAL FAILURE [None]
